FAERS Safety Report 7131548-7 (Version None)
Quarter: 2010Q4

REPORT INFORMATION
  Report Type: 
  Country: None (occurrence: None)
  Receive Date: 20101201
  Receipt Date: 20101124
  Transmission Date: 20110411
  Serious: Yes (Hospitalization, Other)
  Sender: FDA-Public Use
  Company Number: DE-ABBOTT-10P-062-0678522-00

PATIENT
  Sex: Male
  Weight: 76 kg

DRUGS (2)
  1. HUMIRA [Suspect]
     Indication: CROHN'S DISEASE
     Route: 058
  2. MESALAMINE [Concomitant]
     Indication: CROHN'S DISEASE

REACTIONS (2)
  - ABSCESS [None]
  - FISTULA [None]
